FAERS Safety Report 4350878-5 (Version None)
Quarter: 2004Q2

REPORT INFORMATION
  Report Type: 
  Country: None (occurrence: None)
  Receive Date: 20040428
  Receipt Date: 20040415
  Transmission Date: 20050107
  Serious: Yes (Hospitalization)
  Sender: FDA-Public Use
  Company Number: 2004025806

PATIENT
  Age: 48 Year
  Sex: Male

DRUGS (1)
  1. LITHIUM (LITHIUM) [Suspect]
     Indication: BIPOLAR DISORDER
     Dosage: 600 MG (DAILY)

REACTIONS (15)
  - BLOOD CHLORIDE INCREASED [None]
  - BLOOD CREATININE INCREASED [None]
  - BLOOD UREA INCREASED [None]
  - DEHYDRATION [None]
  - DRUG INEFFECTIVE [None]
  - FEMUR FRACTURE [None]
  - HEART RATE INCREASED [None]
  - HYPERNATRAEMIA [None]
  - ILEUS [None]
  - MANIA [None]
  - MULTIPLE FRACTURES [None]
  - NEPHROGENIC DIABETES INSIPIDUS [None]
  - RADIUS FRACTURE [None]
  - ROAD TRAFFIC ACCIDENT [None]
  - ULNA FRACTURE [None]
